FAERS Safety Report 5373376-9 (Version None)
Quarter: 2007Q2

REPORT INFORMATION
  Report Type: 
  Country: None (occurrence: None)
  Receive Date: 20070628
  Receipt Date: 20070619
  Transmission Date: 20071010
  Serious: Yes (Other)
  Sender: FDA-Public Use
  Company Number: US-JNJFOC-20070605140

PATIENT
  Sex: Male
  Weight: 86.18 kg

DRUGS (10)
  1. LEVAQUIN [Suspect]
     Indication: INFECTION
     Route: 048
  2. GABITRIL [Suspect]
     Indication: CONVULSION
     Route: 048
  3. FLAGYL [Suspect]
     Indication: INFECTION
     Route: 048
  4. ZOCOR [Concomitant]
     Route: 065
  5. LISINOPRIL [Concomitant]
     Route: 065
  6. TIAZAC [Concomitant]
     Route: 065
  7. ZANTAC [Concomitant]
     Route: 065
  8. ASPIRIN [Concomitant]
     Route: 065
  9. MULTIVITAMIN [Concomitant]
     Route: 065
  10. GLUCOSAMINE [Concomitant]
     Route: 065

REACTIONS (2)
  - AMNESIA [None]
  - CONFUSIONAL STATE [None]
